FAERS Safety Report 13463625 (Version 9)
Quarter: 2018Q3

REPORT INFORMATION
  Report Type: Spontaneous
  Country: US (occurrence: US)
  Receive Date: 20170420
  Receipt Date: 20180814
  Transmission Date: 20181010
  Serious: No
  Sender: FDA-Public Use
  Company Number: US-ACTELION-A-US2017-149784

PATIENT
  Age: 53 Year
  Sex: Female
  Weight: 75.28 kg

DRUGS (12)
  1. ADCIRCA [Concomitant]
     Active Substance: TADALAFIL
  2. UPTRAVI [Suspect]
     Active Substance: SELEXIPAG
     Indication: PULMONARY ARTERIAL HYPERTENSION
     Dosage: 600 MCG, BID
     Route: 048
  3. UPTRAVI [Suspect]
     Active Substance: SELEXIPAG
     Dosage: 800 MCG, BID
     Route: 048
  4. UPTRAVI [Suspect]
     Active Substance: SELEXIPAG
     Dosage: 400 MCG, BID
     Route: 048
  5. UPTRAVI [Suspect]
     Active Substance: SELEXIPAG
     Dosage: UNK
     Route: 048
     Dates: start: 20170114, end: 20170517
  6. REMODULIN [Suspect]
     Active Substance: TREPROSTINIL
     Indication: PRODUCT USED FOR UNKNOWN INDICATION
     Route: 042
  7. DILTIAZEM. [Concomitant]
     Active Substance: DILTIAZEM
  8. LETAIRIS [Concomitant]
     Active Substance: AMBRISENTAN
  9. WARFARIN [Concomitant]
     Active Substance: WARFARIN
  10. UPTRAVI [Suspect]
     Active Substance: SELEXIPAG
     Dosage: 200 MCG, BID
     Route: 048
  11. AMBRISENTAN [Suspect]
     Active Substance: AMBRISENTAN
     Indication: PRODUCT USED FOR UNKNOWN INDICATION
     Dosage: 5 MG, QD
     Route: 065
     Dates: start: 20150625
  12. AMBRISENTAN [Suspect]
     Active Substance: AMBRISENTAN
     Dosage: 10 MG, QD
     Route: 065

REACTIONS (15)
  - Headache [Not Recovered/Not Resolved]
  - Therapy non-responder [Unknown]
  - Infusion site erythema [Not Recovered/Not Resolved]
  - Myalgia [Unknown]
  - General physical health deterioration [Unknown]
  - Pain in jaw [Not Recovered/Not Resolved]
  - Pain in extremity [Not Recovered/Not Resolved]
  - Pain [Not Recovered/Not Resolved]
  - Infusion site pain [Not Recovered/Not Resolved]
  - Diarrhoea [Recovered/Resolved]
  - Condition aggravated [Unknown]
  - Infusion site haematoma [Not Recovered/Not Resolved]
  - Musculoskeletal stiffness [Unknown]
  - Chest pain [Unknown]
  - Flushing [Unknown]

NARRATIVE: CASE EVENT DATE: 20170501
